FAERS Safety Report 25124439 (Version 1)
Quarter: 2025Q1

REPORT INFORMATION
  Report Type: Spontaneous
  Country: US (occurrence: US)
  Receive Date: 20250326
  Receipt Date: 20250326
  Transmission Date: 20250408
  Serious: Yes (Other)
  Sender: AMERICAN REGENT
  Company Number: US-AMERICAN REGENT INC-2025001182

PATIENT
  Age: 38 Year
  Sex: Male

DRUGS (4)
  1. METOPROLOL [Suspect]
     Active Substance: METOPROLOL
     Indication: Tachycardia
     Route: 042
  2. METOPROLOL [Suspect]
     Active Substance: METOPROLOL
     Indication: Electrocardiogram ST segment depression
     Route: 042
  3. ESMOLOL HYDROCHLORIDE [Suspect]
     Active Substance: ESMOLOL HYDROCHLORIDE
     Indication: Tachycardia
     Route: 042
  4. ESMOLOL HYDROCHLORIDE [Suspect]
     Active Substance: ESMOLOL HYDROCHLORIDE
     Indication: Electrocardiogram ST segment depression

REACTIONS (2)
  - Hyperkalaemia [Recovering/Resolving]
  - Product use in unapproved indication [Unknown]
